FAERS Safety Report 5945543-4 (Version None)
Quarter: 2008Q4

REPORT INFORMATION
  Report Type: 
  Country: None (occurrence: None)
  Receive Date: 20081107
  Receipt Date: 20081030
  Transmission Date: 20090506
  Serious: Yes (Death, Hospitalization)
  Sender: FDA-Public Use
  Company Number: US-ROXANE LABORATORIES, INC.-2008-RO-00184RO

PATIENT
  Age: 36 Year
  Sex: Female

DRUGS (8)
  1. CYCLOPHOSPHAMIDE [Suspect]
     Indication: LUPUS NEPHRITIS
     Route: 042
  2. CYCLOPHOSPHAMIDE [Suspect]
     Route: 042
  3. PREDNISONE TAB [Suspect]
  4. METHYLPREDNISOLONE 16MG TAB [Suspect]
     Indication: LUPUS NEPHRITIS
  5. TRIMETHOPRIM + SULFAMETHOXAZOLE [Suspect]
     Indication: ANTIFUNGAL PROPHYLAXIS
  6. ATOVAQUONE [Suspect]
     Indication: ANTIFUNGAL PROPHYLAXIS
     Dosage: 1500MG
  7. METHYLPREDNISOLONE 16MG TAB [Concomitant]
     Indication: PNEUMOCYSTIS JIROVECI INFECTION
     Dosage: 300MG
  8. PENTAMIDINE [Concomitant]
     Indication: PNEUMOCYSTIS JIROVECI INFECTION
     Route: 042

REACTIONS (10)
  - ACUTE RESPIRATORY DISTRESS SYNDROME [None]
  - CENTRAL LINE INFECTION [None]
  - DYSPNOEA [None]
  - FEBRILE NEUTROPENIA [None]
  - HAEMORRHAGE INTRACRANIAL [None]
  - JAUNDICE CHOLESTATIC [None]
  - LUNG INFILTRATION [None]
  - PNEUMOCYSTIS JIROVECI PNEUMONIA [None]
  - RENAL FAILURE CHRONIC [None]
  - RESPIRATORY FAILURE [None]
